FAERS Safety Report 12372595 (Version 10)
Quarter: 2019Q4

REPORT INFORMATION
  Report Type: Spontaneous
  Country: US (occurrence: US)
  Receive Date: 20160516
  Receipt Date: 20191216
  Transmission Date: 20200122
  Serious: No
  Sender: FDA-Public Use
  Company Number: US-PFIZER INC-2016257869

PATIENT
  Age: 70 Year
  Sex: Female
  Weight: 61 kg

DRUGS (2)
  1. PREMARIN [Suspect]
     Active Substance: ESTROGENS, CONJUGATED
     Indication: BLADDER OPERATION
     Dosage: UNK, 2X/WEEK (1G TWICE A WEEK ON ONE WEEK MON THURS NEXT TUES FRI VAGINAL)
     Route: 067
  2. PREMARIN [Suspect]
     Active Substance: ESTROGENS, CONJUGATED
     Indication: VULVOVAGINAL DRYNESS

REACTIONS (7)
  - Vaginal infection [Recovered/Resolved]
  - Vulvovaginal burning sensation [Unknown]
  - Body height decreased [Unknown]
  - Wrong technique in product usage process [Unknown]
  - Memory impairment [Unknown]
  - Off label use [Unknown]
  - Vulvovaginal pruritus [Unknown]
